FAERS Safety Report 9193716 (Version 12)
Quarter: 2021Q1

REPORT INFORMATION
  Report Type: Spontaneous
  Country: US (occurrence: US)
  Receive Date: 20130327
  Receipt Date: 20210218
  Transmission Date: 20210420
  Serious: Yes (Hospitalization, Other)
  Sender: FDA-Public Use
  Company Number: US-PFIZER INC-2013098151

PATIENT
  Age: 85 Year
  Sex: Female

DRUGS (2)
  1. LYRICA [Suspect]
     Active Substance: PREGABALIN
     Indication: NEURALGIA
  2. LYRICA [Suspect]
     Active Substance: PREGABALIN
     Indication: RADICULOPATHY
     Dosage: 50 MG, 2X/DAY
     Route: 048

REACTIONS (13)
  - Amnesia [Unknown]
  - Hypoacusis [Unknown]
  - Emotional disorder [Unknown]
  - Nervousness [Unknown]
  - Nasopharyngitis [Unknown]
  - Anxiety [Unknown]
  - Myocardial infarction [Recovered/Resolved]
  - Ear discomfort [Unknown]
  - Alopecia [Unknown]
  - Fibromyalgia [Unknown]
  - Feeling abnormal [Unknown]
  - COVID-19 [Unknown]
  - Pain [Unknown]

NARRATIVE: CASE EVENT DATE: 2020
